FAERS Safety Report 17806639 (Version 1)
Quarter: 2020Q2

REPORT INFORMATION
  Report Type: Spontaneous
  Country: US (occurrence: US)
  Receive Date: 20200519
  Receipt Date: 20200519
  Transmission Date: 20200714
  Serious: Yes (Life-Threatening)
  Sender: FDA-Public Use
  Company Number: None

PATIENT
  Age: 60 Year
  Sex: Male
  Weight: 74.7 kg

DRUGS (1)
  1. REMDESIVIR. [Suspect]
     Active Substance: REMDESIVIR
     Indication: COVID-19 PNEUMONIA
     Dates: start: 20200513, end: 20200518

REACTIONS (6)
  - Haemodynamic instability [None]
  - Shock [None]
  - Sepsis [None]
  - General physical health deterioration [None]
  - Pneumothorax [None]
  - Pulmonary embolism [None]

NARRATIVE: CASE EVENT DATE: 20200518
